FAERS Safety Report 14309588 (Version 4)
Quarter: 2022Q3

REPORT INFORMATION
  Report Type: Spontaneous
  Country: SK (occurrence: SK)
  Receive Date: 20171220
  Receipt Date: 20220826
  Transmission Date: 20221026
  Serious: Yes (Life-Threatening, Hospitalization, Other)
  Sender: FDA-Public Use
  Company Number: None

PATIENT
  Age: 53 Year
  Sex: Female

DRUGS (12)
  1. METHYLPREDNISOLONE [Interacting]
     Active Substance: METHYLPREDNISOLONE
     Indication: Immunosuppression
     Dosage: UNK UNK,UNK
     Route: 065
  2. RIFAMPIN [Interacting]
     Active Substance: RIFAMPIN
     Indication: Tuberculosis gastrointestinal
     Dosage: UNK UNK,UNK
     Route: 065
  3. RIFAMPIN [Interacting]
     Active Substance: RIFAMPIN
     Dosage: UNK UNK,UNK
     Route: 065
  4. VORICONAZOLE [Interacting]
     Active Substance: VORICONAZOLE
     Indication: Aspergillus infection
     Dosage: 300 MG,Q12H
     Route: 042
  5. VORICONAZOLE [Interacting]
     Active Substance: VORICONAZOLE
     Dosage: 200 MG,Q12H
     Route: 042
  6. VORICONAZOLE [Interacting]
     Active Substance: VORICONAZOLE
     Dosage: 400 MG,Q12H
     Route: 042
  7. MYCOPHENOLATE MOFETIL [Suspect]
     Active Substance: MYCOPHENOLATE MOFETIL
     Indication: Immunosuppression
     Dosage: 1000 MG,BID
     Route: 065
  8. MYCOPHENOLATE MOFETIL [Suspect]
     Active Substance: MYCOPHENOLATE MOFETIL
     Dosage: 1000 MG,BID
     Route: 065
  9. CYCLOSPORINE [Interacting]
     Active Substance: CYCLOSPORINE
     Indication: Immunosuppression
     Dosage: 25 MG-0-50 MG
     Route: 065
  10. CYCLOSPORINE [Interacting]
     Active Substance: CYCLOSPORINE
     Dosage: 100 MG,UNK
     Route: 065
  11. CYCLOSPORINE [Interacting]
     Active Substance: CYCLOSPORINE
     Dosage: 25 MG-0-50 MG
     Route: 065
  12. HYDROCORTISONE [Concomitant]
     Active Substance: HYDROCORTISONE
     Indication: Immunosuppression

REACTIONS (40)
  - Tuberculosis gastrointestinal [Recovered/Resolved]
  - Pyrexia [Recovered/Resolved]
  - Lymphadenitis [Recovered/Resolved]
  - Granuloma [Recovered/Resolved]
  - Enteritis [Recovered/Resolved]
  - Peritonitis [Recovered/Resolved]
  - Salpingo-oophoritis [Recovered/Resolved]
  - Intestinal haemorrhage [Recovered/Resolved]
  - Anaemia [Recovered/Resolved]
  - Abdominal pain [Recovered/Resolved]
  - Pneumonia [Recovered/Resolved]
  - Dyspnoea [Recovered/Resolved]
  - Cough [Recovered/Resolved]
  - Sepsis [Recovered/Resolved]
  - Staphylococcal infection [Recovered/Resolved]
  - Aspergillus infection [Recovered/Resolved]
  - Pseudomonas infection [Recovered/Resolved]
  - Staphylococcal infection [Recovered/Resolved]
  - Septic shock [Recovered/Resolved]
  - Multiple organ dysfunction syndrome [Recovered/Resolved]
  - Acute kidney injury [Recovered/Resolved]
  - Acute respiratory distress syndrome [Recovered/Resolved]
  - Metabolic acidosis [Recovered/Resolved]
  - Respiratory acidosis [Recovered/Resolved]
  - Pleural effusion [Recovered/Resolved]
  - Pericardial effusion [Recovered/Resolved]
  - Hyperkalaemia [Recovered/Resolved]
  - C-reactive protein increased [Recovered/Resolved]
  - Procalcitonin increased [Recovered/Resolved]
  - Heart rate increased [Recovered/Resolved]
  - Hypotension [Recovered/Resolved]
  - Hyperchloraemia [Recovered/Resolved]
  - Blood urea increased [Recovered/Resolved]
  - Blood creatinine increased [Recovered/Resolved]
  - Aspartate aminotransferase increased [Recovered/Resolved]
  - Drug level decreased [Recovered/Resolved]
  - Drug interaction [Unknown]
  - Tuberculosis [Unknown]
  - Pulmonary tuberculosis [Unknown]
  - Pneumothorax [Unknown]
